FAERS Safety Report 10606266 (Version 1)
Quarter: 2014Q4

REPORT INFORMATION
  Report Type: Spontaneous
  Country: IT (occurrence: None)
  Receive Date: 20141121
  Receipt Date: 20141121
  Transmission Date: 20150529
  Serious: Yes (Hospitalization)
  Sender: FDA-Public Use
  Company Number: 2625627

PATIENT
  Age: 61 Year
  Sex: Female

DRUGS (8)
  1. CARDIRENE [Concomitant]
     Active Substance: ASPIRIN DL-LYSINE
  2. TAVOR [Concomitant]
     Active Substance: LORAZEPAM
  3. ESOPRAL [Concomitant]
     Active Substance: ESOMEPRAZOLE MAGNESIUM
  4. FLUOROURACIL. [Suspect]
     Active Substance: FLUOROURACIL
     Indication: PRODUCT USED FOR UNKNOWN INDICATION
     Dosage: 1.5 G GRAM(S)  (TOTAL ) UNKNOWN
     Dates: start: 20140901, end: 20141001
  5. CALCIO LEVOFOLINATO TEVA [Concomitant]
     Active Substance: LEUCOVORIN CALCIUM
  6. LYRICA [Concomitant]
     Active Substance: PREGABALIN
  7. OXALIPLATIN. [Suspect]
     Active Substance: OXALIPLATIN
     Indication: COLON NEOPLASM
     Dosage: 120 MG MILLIGRAM (S), CYCLICAL, INTRAVENOUS DRIP
     Route: 041
     Dates: start: 20140901, end: 20141001
  8. CRESTOR [Concomitant]
     Active Substance: ROSUVASTATIN CALCIUM

REACTIONS (2)
  - Enteritis [None]
  - Headache [None]

NARRATIVE: CASE EVENT DATE: 20141101
